FAERS Safety Report 7350212-2 (Version None)
Quarter: 2011Q1

REPORT INFORMATION
  Report Type: 
  Country: None (occurrence: None)
  Receive Date: 20110309
  Receipt Date: 20110309
  Transmission Date: 20110831
  Serious: Yes (Other)
  Sender: FDA-Public Use
  Company Number: None

PATIENT
  Age: 51 Year
  Sex: Female
  Weight: 49.8957 kg

DRUGS (1)
  1. VALACYCLOVIR [Suspect]
     Indication: HERPES SIMPLEX
     Dosage: 1GM DAILY PO
     Route: 048
     Dates: start: 20100521, end: 20100527

REACTIONS (2)
  - PRODUCT SUBSTITUTION ISSUE [None]
  - HERPES VIRUS INFECTION [None]
